FAERS Safety Report 10236034 (Version 1)
Quarter: 2014Q2

REPORT INFORMATION
  Report Type: Spontaneous
  Country: GB (occurrence: GB)
  Receive Date: 20140613
  Receipt Date: 20140613
  Transmission Date: 20141212
  Serious: Yes (Other)
  Sender: FDA-Public Use
  Company Number: US-ASTRAZENECA-2014SE40803

PATIENT
  Sex: 0

DRUGS (7)
  1. AMIAS [Suspect]
     Indication: PRODUCT USED FOR UNKNOWN INDICATION
     Route: 048
  2. ATORVASTATIN [Concomitant]
  3. ATORVASTATIN [Concomitant]
  4. BISOPROLOL [Concomitant]
  5. BISOPROLOL [Concomitant]
  6. ASPIRIN [Concomitant]
  7. ALLOPURINOL [Concomitant]

REACTIONS (4)
  - High density lipoprotein decreased [Unknown]
  - Coronary artery disease [Unknown]
  - Angiogenesis biomarker [Unknown]
  - Malaise [Unknown]
